FAERS Safety Report 21839331 (Version 1)
Quarter: 2023Q1

REPORT INFORMATION
  Report Type: Spontaneous
  Country: US (occurrence: US)
  Receive Date: 20230109
  Receipt Date: 20230109
  Transmission Date: 20230418
  Serious: Yes (Other)
  Sender: FDA-Public Use
  Company Number: US-ALLERGAN-2300296US

PATIENT
  Sex: Female

DRUGS (1)
  1. BOTOX [Suspect]
     Active Substance: ONABOTULINUMTOXINA
     Indication: Product used for unknown indication
     Dosage: UNK, SINGLE
     Dates: start: 20220716, end: 20220716

REACTIONS (4)
  - Knee operation [Unknown]
  - Migraine [Not Recovered/Not Resolved]
  - Drug ineffective [Unknown]
  - Anxiety [Unknown]

NARRATIVE: CASE EVENT DATE: 20220101
